FAERS Safety Report 6898074-1 (Version None)
Quarter: 2010Q3

REPORT INFORMATION
  Report Type: 
  Country: None (occurrence: None)
  Receive Date: 20100729
  Receipt Date: 20100719
  Transmission Date: 20110219
  Serious: Yes (Other)
  Sender: FDA-Public Use
  Company Number: 015265

PATIENT
  Sex: Male

DRUGS (10)
  1. PIRACETAM (PIRACETAM) [Suspect]
     Indication: MYOCLONUS
     Dosage: 6 G TID ORAL
     Route: 048
     Dates: start: 20000101
  2. KEPPRA [Suspect]
     Indication: EPILEPSY
     Dosage: 1500 MG ORAL, 1250 MG BID ORAL
     Route: 048
     Dates: start: 20081001
  3. KEPPRA [Suspect]
     Indication: MYOCLONUS
     Dosage: 1500 MG ORAL, 1250 MG BID ORAL
     Route: 048
     Dates: start: 20081001
  4. KEPPRA [Suspect]
     Indication: EPILEPSY
     Dosage: 1500 MG ORAL, 1250 MG BID ORAL
     Route: 048
     Dates: start: 20090701
  5. KEPPRA [Suspect]
     Indication: MYOCLONUS
     Dosage: 1500 MG ORAL, 1250 MG BID ORAL
     Route: 048
     Dates: start: 20090701
  6. BUMETANIDE [Concomitant]
  7. PANTOPRAZOLE [Concomitant]
  8. VALPROIC ACID [Concomitant]
  9. CLONAZEPAM [Concomitant]
  10. LAMOTRIGINE [Concomitant]

REACTIONS (3)
  - DRUG INTERACTION [None]
  - DRUG LEVEL DECREASED [None]
  - LABORATORY TEST INTERFERENCE [None]
